FAERS Safety Report 8483824-3 (Version None)
Quarter: 2012Q3

REPORT INFORMATION
  Report Type: 
  Country: None (occurrence: None)
  Receive Date: 20120703
  Receipt Date: 20120628
  Transmission Date: 20120928
  Serious: No
  Sender: FDA-Public Use
  Company Number: US-BIOGENIDEC-2012BI023197

PATIENT
  Age: 51 Year
  Sex: Female

DRUGS (1)
  1. TYSABRI [Suspect]
     Indication: MULTIPLE SCLEROSIS
     Route: 042
     Dates: start: 20080825

REACTIONS (6)
  - BALANCE DISORDER [None]
  - FALL [None]
  - BACK INJURY [None]
  - EAR INFECTION [None]
  - PHARYNGITIS [None]
  - SEASONAL ALLERGY [None]
